FAERS Safety Report 19901648 (Version 1)
Quarter: 2021Q3

REPORT INFORMATION
  Report Type: Spontaneous
  Country: US (occurrence: US)
  Receive Date: 20210930
  Receipt Date: 20210930
  Transmission Date: 20211014
  Serious: Yes (Other)
  Sender: FDA-Public Use
  Company Number: US-SA-2021SA321339

PATIENT
  Age: 14 Year
  Sex: Male

DRUGS (4)
  1. ALPROLIX [Suspect]
     Active Substance: EFTRENONACOG ALFA
     Indication: HAEMORRHAGE PROPHYLAXIS
     Dosage: 4420 UNITS FOR MILD BLEED, 8840 UNITS FOR MAJOR BLEED FREQUENCY: MONDAY AND THURDAY
     Route: 042
     Dates: start: 20171211
  2. ALPROLIX [Suspect]
     Active Substance: EFTRENONACOG ALFA
     Indication: FACTOR IX DEFICIENCY
     Dosage: 8500 IU, QD
     Route: 042
     Dates: start: 20210922
  3. ALPROLIX [Suspect]
     Active Substance: EFTRENONACOG ALFA
     Indication: HAEMORRHAGE PROPHYLAXIS
     Dosage: 4420 UNITS FOR MILD BLEED, 8840 UNITS FOR MAJOR BLEED FREQUENCY: MONDAY AND THURDAY
     Route: 042
     Dates: start: 20171211
  4. ALPROLIX [Suspect]
     Active Substance: EFTRENONACOG ALFA
     Indication: FACTOR IX DEFICIENCY
     Dosage: 8500 IU, QD
     Route: 042
     Dates: start: 20210922

REACTIONS (3)
  - Head injury [Unknown]
  - Contusion [Unknown]
  - Haematoma [Unknown]

NARRATIVE: CASE EVENT DATE: 20210922
